FAERS Safety Report 6583287-9 (Version None)
Quarter: 2010Q1

REPORT INFORMATION
  Report Type: 
  Country: None (occurrence: None)
  Receive Date: 20100216
  Receipt Date: 20100208
  Transmission Date: 20100710
  Serious: Yes (Hospitalization)
  Sender: FDA-Public Use
  Company Number: B0633579A

PATIENT
  Sex: Female

DRUGS (9)
  1. LANOXIN [Suspect]
     Indication: ATRIAL FIBRILLATION
     Dosage: .0625MG PER DAY
     Route: 048
     Dates: start: 20081001, end: 20090622
  2. CORDARONE [Suspect]
     Indication: ATRIAL FIBRILLATION
     Dosage: 400MG PER DAY
     Route: 048
     Dates: start: 20081001, end: 20090622
  3. LANSOPRAZOLE [Concomitant]
  4. LASIX [Concomitant]
     Indication: HYPERTENSION
     Dosage: 75MG PER DAY
     Route: 048
  5. MADOPAR [Concomitant]
     Indication: PARKINSON'S DISEASE
     Dosage: 500MG PER DAY
     Route: 048
  6. ALDACTONE [Concomitant]
     Indication: HYPERTENSION
     Dosage: 25MG PER DAY
     Route: 048
  7. COUMADIN [Concomitant]
     Indication: ATRIAL FIBRILLATION
     Dosage: 2.5MG PER DAY
     Route: 048
  8. MINITRAN [Concomitant]
     Indication: ANGINA PECTORIS
     Dosage: 5MG PER DAY
     Route: 062
  9. ENAPREN [Concomitant]
     Indication: HYPERTENSION
     Dosage: 20MG PER DAY
     Route: 048

REACTIONS (2)
  - BRADYCARDIA [None]
  - CARDIAC FAILURE [None]
